FAERS Safety Report 5049601-0 (Version None)
Quarter: 2006Q3

REPORT INFORMATION
  Report Type: 
  Country: None (occurrence: None)
  Receive Date: 20060712
  Receipt Date: 20060704
  Transmission Date: 20061208
  Serious: Yes (Hospitalization)
  Sender: FDA-Public Use
  Company Number: FR-BRISTOL-MYERS SQUIBB COMPANY-13436449

PATIENT
  Age: 57 Year
  Sex: Female

DRUGS (7)
  1. ENDOXAN [Suspect]
     Indication: MULTIPLE SCLEROSIS
     Route: 042
     Dates: start: 20060509, end: 20060509
  2. OXCARBAZEPINE [Concomitant]
  3. IMOVANE [Concomitant]
  4. BACLOFEN [Concomitant]
  5. PARACETAMOL [Concomitant]
  6. VASOBRAL [Concomitant]
  7. ZALDIAR [Concomitant]
     Indication: BACK PAIN
     Dates: start: 20060504, end: 20060504

REACTIONS (4)
  - ALANINE AMINOTRANSFERASE INCREASED [None]
  - ASPARTATE AMINOTRANSFERASE INCREASED [None]
  - NAUSEA [None]
  - VOMITING [None]
